FAERS Safety Report 15134298 (Version 1)
Quarter: 2018Q4

REPORT INFORMATION
  Report Type: Spontaneous
  Country: US (occurrence: US)
  Receive Date: 20180712
  Receipt Date: 20180712
  Transmission Date: 20190204
  Serious: No
  Sender: FDA-Public Use
  Company Number: US-GALDERMA-US18007163

PATIENT
  Age: 21 Year
  Sex: Female

DRUGS (9)
  1. CETAPHIL DAILY FACIAL CLEANSER [Suspect]
     Active Substance: COSMETICS
     Indication: ACNE
     Route: 061
     Dates: start: 20180401
  2. DIFFERIN GEL [Suspect]
     Active Substance: ADAPALENE
     Indication: ACNE
     Dosage: 0.1%
     Route: 061
     Dates: start: 20180401
  3. CETAPHIL GENTLE SKIN CLEANSER [Suspect]
     Active Substance: COSMETICS
     Indication: ACNE
     Route: 061
     Dates: start: 20180401
  4. CETAPHIL NIGHT CREAM [Suspect]
     Active Substance: COSMETICS
     Indication: PRODUCT USED FOR UNKNOWN INDICATION
     Route: 061
  5. DIFFERIN GEL [Suspect]
     Active Substance: ADAPALENE
     Route: 061
  6. CETAPHIL DAILY FACIAL CLEANSER [Suspect]
     Active Substance: COSMETICS
     Route: 061
  7. CETAPHIL GENTLE MAKEUP REMOVING WIPES [Suspect]
     Active Substance: COSMETICS
     Indication: PRODUCT USED FOR UNKNOWN INDICATION
     Route: 061
  8. DIFFERIN GEL [Suspect]
     Active Substance: ADAPALENE
     Route: 061
     Dates: start: 20180408
  9. CETAPHIL MOISTURIZING LOTION (DIFFERIN BALANCING MOISTURIZER) [Suspect]
     Active Substance: COSMETICS
     Indication: PRODUCT USED FOR UNKNOWN INDICATION
     Route: 061

REACTIONS (7)
  - Dry skin [Not Recovered/Not Resolved]
  - Inappropriate schedule of product administration [Not Recovered/Not Resolved]
  - Skin burning sensation [Recovered/Resolved]
  - Erythema [Recovered/Resolved]
  - Alopecia [Not Recovered/Not Resolved]
  - Inappropriate schedule of product administration [Recovered/Resolved]
  - Acne [Not Recovered/Not Resolved]

NARRATIVE: CASE EVENT DATE: 201804
